FAERS Safety Report 21763369 (Version 2)
Quarter: 2023Q2

REPORT INFORMATION
  Report Type: Report from Study
  Country: IT (occurrence: IT)
  Receive Date: 20221221
  Receipt Date: 20230601
  Transmission Date: 20230721
  Serious: Yes (Other)
  Sender: FDA-Public Use
  Company Number: IT-JNJFOC-20221238018

PATIENT
  Sex: Female

DRUGS (5)
  1. SELEXIPAG [Suspect]
     Active Substance: SELEXIPAG
     Indication: Pulmonary arterial hypertension
     Route: 048
     Dates: start: 20221019, end: 20221214
  2. MACITENTAN [Suspect]
     Active Substance: MACITENTAN
     Indication: Pulmonary arterial hypertension
     Route: 048
     Dates: start: 20140910
  3. ADEMPAS [Concomitant]
     Active Substance: RIOCIGUAT
     Dosage: TOTAL DAILY DOSE 7.5
     Route: 048
     Dates: start: 20220309
  4. ADCIRCA [Concomitant]
     Active Substance: TADALAFIL
     Indication: Pulmonary arterial hypertension
     Dosage: TOTAL DAILY DOSE 40
     Route: 048
     Dates: start: 20190803, end: 20221019
  5. RIVAROXABAN [Concomitant]
     Active Substance: RIVAROXABAN
     Indication: Atrial fibrillation
     Route: 048
     Dates: start: 20151005

REACTIONS (2)
  - Pulmonary congestion [Unknown]
  - Oedema [Unknown]

NARRATIVE: CASE EVENT DATE: 20221214
